FAERS Safety Report 5673982-8 (Version None)
Quarter: 2008Q1

REPORT INFORMATION
  Report Type: 
  Country: None (occurrence: None)
  Receive Date: 20080317
  Receipt Date: 20080305
  Transmission Date: 20080703
  Serious: Yes (Other)
  Sender: FDA-Public Use
  Company Number: 024688

PATIENT
  Age: 41 Year
  Sex: Female

DRUGS (5)
  1. DIDANOSINE      (DIDANOSINE) DELAYED RELEASE [Suspect]
     Dosage: 400 MG/DAY, ORAL
     Route: 048
     Dates: start: 20060517
  2. ATAZANAVIR SULFATE [Suspect]
     Dosage: 300 MG/DAY, ORAL; 400 MG/DAY, ORAL
     Route: 048
     Dates: start: 20060517, end: 20070118
  3. ATAZANAVIR SULFATE [Suspect]
     Dosage: 300 MG/DAY, ORAL; 400 MG/DAY, ORAL
     Route: 048
     Dates: start: 20070119, end: 20071105
  4. ATAZANAVIR SULFATE [Suspect]
     Dosage: 300 MG/DAY, ORAL; 400 MG/DAY, ORAL
     Route: 048
     Dates: start: 20071108
  5. LAMIVUDINE [Suspect]
     Dosage: 150 MG, BID,
     Dates: start: 20060517

REACTIONS (3)
  - ABORTION SPONTANEOUS [None]
  - DRUG EXPOSURE DURING PREGNANCY [None]
  - PREGNANCY [None]
